FAERS Safety Report 6097891-8 (Version None)
Quarter: 2009Q1

REPORT INFORMATION
  Report Type: 
  Country: None (occurrence: None)
  Receive Date: 20090227
  Receipt Date: 20090219
  Transmission Date: 20090719
  Serious: Yes (Other)
  Sender: FDA-Public Use
  Company Number: PHEH2009US00923

PATIENT
  Age: 79 Year
  Sex: Female
  Weight: 45.351 kg

DRUGS (1)
  1. ZOMETA [Suspect]

REACTIONS (1)
  - CREATININE RENAL CLEARANCE DECREASED [None]
